FAERS Safety Report 9720063 (Version 3)
Quarter: 2013Q4

REPORT INFORMATION
  Report Type: Spontaneous
  Country: US (occurrence: US)
  Receive Date: 20131128
  Receipt Date: 20131219
  Transmission Date: 20140711
  Serious: Yes (Other)
  Sender: FDA-Public Use
  Company Number: US-THROMBOGENICS INC-JET-2013-311

PATIENT
  Age: 71 Year
  Sex: Female

DRUGS (4)
  1. JETREA [Suspect]
     Indication: VITREOUS ADHESIONS
     Dosage: 0.125 MG, ONE TIME DOSE
     Route: 031
     Dates: start: 20131101, end: 20131101
  2. ASPIRIN [Concomitant]
     Indication: PRODUCT USED FOR UNKNOWN INDICATION
     Dosage: 81 MG, QD
     Route: 048
  3. HYDROCHLOROTHIAZIDE [Concomitant]
     Indication: PRODUCT USED FOR UNKNOWN INDICATION
     Dosage: 12.5 MG, QD
     Route: 048
  4. SIMVASTIN [Concomitant]
     Indication: PRODUCT USED FOR UNKNOWN INDICATION
     Dosage: 20 MG, QD
     Route: 048

REACTIONS (7)
  - Pupillary reflex impaired [Recovered/Resolved]
  - Retinal oedema [Recovered/Resolved]
  - Photopsia [Recovered/Resolved]
  - Colour blindness acquired [Recovered/Resolved]
  - Visual impairment [Recovered/Resolved]
  - Chromatopsia [Recovered/Resolved]
  - Iritis [Recovered/Resolved]
